APPROVED DRUG PRODUCT: ALDACTONE
Active Ingredient: SPIRONOLACTONE
Strength: 100MG
Dosage Form/Route: TABLET;ORAL
Application: N012151 | Product #010 | TE Code: AB
Applicant: PFIZER INC
Approved: Dec 30, 1983 | RLD: Yes | RS: Yes | Type: RX